FAERS Safety Report 22272539 (Version 1)
Quarter: 2023Q2

REPORT INFORMATION
  Report Type: Report from Study
  Country: US (occurrence: US)
  Receive Date: 20230502
  Receipt Date: 20230502
  Transmission Date: 20230722
  Serious: No
  Sender: FDA-Public Use
  Company Number: US-002147023-NVSC2023US093903

PATIENT
  Age: 6 Year
  Sex: Male

DRUGS (2)
  1. OMNITROPE [Suspect]
     Active Substance: SOMATROPIN
     Indication: Product used for unknown indication
     Dosage: 10 MG, QD
     Route: 058
     Dates: start: 20200806, end: 20230424
  2. OMNITROPE [Suspect]
     Active Substance: SOMATROPIN
     Dosage: 8 MG, QD
     Route: 065

REACTIONS (2)
  - Diarrhoea [Unknown]
  - Liquid product physical issue [Unknown]

NARRATIVE: CASE EVENT DATE: 20230420
